FAERS Safety Report 7375085-3 (Version None)
Quarter: 2011Q1

REPORT INFORMATION
  Report Type: 
  Country: None (occurrence: None)
  Receive Date: 20110315
  Receipt Date: 20110303
  Transmission Date: 20110831
  Serious: Yes (Death, Other)
  Sender: FDA-Public Use
  Company Number: 2011MA002189

PATIENT

DRUGS (1)
  1. FLUOXETINE [Suspect]
     Indication: DRUG EXPOSURE VIA BREAST MILK
     Dosage: ;TRMA
     Route: 063

REACTIONS (2)
  - DEATH NEONATAL [None]
  - DRUG EXPOSURE VIA BREAST MILK [None]
